FAERS Safety Report 6569347-7 (Version None)
Quarter: 2010Q1

REPORT INFORMATION
  Report Type: 
  Country: None (occurrence: None)
  Receive Date: 20100204
  Receipt Date: 20100127
  Transmission Date: 20100710
  Serious: Yes (Hospitalization)
  Sender: FDA-Public Use
  Company Number: US-BIOGENIDEC-2009BI031684

PATIENT
  Age: 62 Year
  Sex: Male

DRUGS (1)
  1. TYSABRI [Suspect]
     Indication: MULTIPLE SCLEROSIS
     Route: 042
     Dates: start: 20090108

REACTIONS (9)
  - ABDOMINAL DISCOMFORT [None]
  - BLOOD SODIUM DECREASED [None]
  - CHEST PAIN [None]
  - HYPERTENSION [None]
  - LOSS OF CONSCIOUSNESS [None]
  - POST PROCEDURAL INFECTION [None]
  - PRODUCTIVE COUGH [None]
  - PROSTATE CANCER [None]
  - VOMITING [None]
